FAERS Safety Report 4675730-7 (Version None)
Quarter: 2005Q2

REPORT INFORMATION
  Report Type: 
  Country: None (occurrence: None)
  Receive Date: 20050527
  Receipt Date: 20050302
  Transmission Date: 20051028
  Serious: No
  Sender: FDA-Public Use
  Company Number: US-BRISTOL-MYERS SQUIBB COMPANY-12883070

PATIENT
  Age: 44 Year
  Sex: Female
  Weight: 80 kg

DRUGS (11)
  1. ERBITUX [Suspect]
     Indication: COLON CANCER METASTATIC
     Dosage: LOAD DOSE (670 MG) 02-FEB-05, 2ND DOSE (475 MG) 10-FEB-05, 3RD DOSE (475 MG) GIVEN ON 18-FEB-05
     Route: 042
     Dates: start: 20050201, end: 20050201
  2. BENADRYL [Concomitant]
     Indication: PREMEDICATION
     Dosage: REC'D 50 MG DOSE 02-FEB-05 AND 10-FEB-05
     Dates: start: 20050201, end: 20050201
  3. DECADRON [Concomitant]
     Indication: PREMEDICATION
     Dates: start: 20050202, end: 20050202
  4. ALOXI [Concomitant]
     Indication: PREMEDICATION
     Dates: start: 20050202, end: 20050202
  5. ATROPINE [Concomitant]
     Indication: PREMEDICATION
     Dates: start: 20050202, end: 20050202
  6. CAMPTOSAR [Concomitant]
     Dates: start: 20050202, end: 20050202
  7. LEUCOVORIN CALCIUM [Concomitant]
     Dates: start: 20050202, end: 20050202
  8. FLUOROURACIL [Concomitant]
     Dosage: ADMINISTERED OVER 46 HOURS VIA IV PUMP AT HOME
     Route: 042
     Dates: start: 20050202, end: 20050201
  9. ESTRATEST H.S. [Concomitant]
     Dosage: DOSAGE FORM = 1 TABLET
  10. COUMADIN [Concomitant]
  11. AMBIEN [Concomitant]
     Dosage: GIVEN AT NIGHT

REACTIONS (3)
  - DRY SKIN [None]
  - INFLUENZA [None]
  - SKIN WRINKLING [None]
